FAERS Safety Report 7909946-0 (Version None)
Quarter: 2011Q4

REPORT INFORMATION
  Report Type: 
  Country: None (occurrence: None)
  Receive Date: 20111111
  Receipt Date: 20111031
  Transmission Date: 20120403
  Serious: Yes (Life-Threatening, Hospitalization)
  Sender: FDA-Public Use
  Company Number: JP-JNJFOC-20070704731

PATIENT
  Sex: Female
  Weight: 33 kg

DRUGS (14)
  1. LOXONIN [Concomitant]
     Indication: RHEUMATOID ARTHRITIS
     Route: 048
     Dates: start: 19990101, end: 20070708
  2. REMICADE [Suspect]
     Indication: RHEUMATOID ARTHRITIS
     Dosage: 3RD INFUSION
     Route: 042
     Dates: start: 20070629
  3. RHEUMATREX [Suspect]
     Indication: RHEUMATOID ARTHRITIS
     Route: 048
     Dates: start: 19990301, end: 20070708
  4. PREDNISOLONE [Concomitant]
     Indication: RHEUMATOID ARTHRITIS
     Route: 048
  5. PREDNISOLONE [Concomitant]
     Route: 048
     Dates: start: 19990420, end: 20070713
  6. FOLIC ACID [Concomitant]
     Indication: PROPHYLAXIS
     Route: 048
     Dates: start: 19990301, end: 20070708
  7. GASLON N [Concomitant]
     Indication: PROPHYLAXIS AGAINST GASTROINTESTINAL ULCER
     Route: 048
     Dates: start: 19990420
  8. ISONIAZID [Concomitant]
     Indication: ANTIBIOTIC PROPHYLAXIS
     Route: 048
     Dates: start: 20070518, end: 20070708
  9. REMICADE [Suspect]
     Dosage: 2ND INFUSION
     Route: 042
     Dates: start: 20070601
  10. ALFAROL [Concomitant]
     Indication: OSTEOPOROSIS
     Dosage: DAILY DOSE 1RG
     Route: 048
     Dates: start: 19990420
  11. REMICADE [Suspect]
     Dosage: 1ST INFUSION
     Route: 042
     Dates: start: 20070518
  12. RIMATIL [Suspect]
     Indication: RHEUMATOID ARTHRITIS
     Route: 048
     Dates: start: 20000802, end: 20070708
  13. AZULFIDINE [Suspect]
     Indication: PRODUCT USED FOR UNKNOWN INDICATION
     Route: 048
  14. PREDNISOLONE [Concomitant]
     Route: 048
     Dates: start: 20070714

REACTIONS (2)
  - INTERSTITIAL LUNG DISEASE [None]
  - PNEUMOCYSTIS JIROVECI PNEUMONIA [None]
